FAERS Safety Report 5260553-0 (Version None)
Quarter: 2007Q1

REPORT INFORMATION
  Report Type: 
  Country: None (occurrence: None)
  Receive Date: 20070309
  Receipt Date: 20061027
  Transmission Date: 20070707
  Serious: No
  Sender: FDA-Public Use
  Company Number: US-GLAXOSMITHKLINE-A0625038A

PATIENT
  Sex: Female

DRUGS (2)
  1. NICORETTE [Suspect]
     Dates: end: 20061025
  2. NICORETTE (MINT) [Suspect]

REACTIONS (2)
  - DRUG INEFFECTIVE [None]
  - IRRITABILITY [None]
